FAERS Safety Report 20739966 (Version 1)
Quarter: 2022Q2

REPORT INFORMATION
  Report Type: Spontaneous
  Country: US (occurrence: None)
  Receive Date: 20220422
  Receipt Date: 20220422
  Transmission Date: 20220721
  Serious: Yes (Hospitalization)
  Sender: FDA-Public Use
  Company Number: None

PATIENT
  Age: 25 Year
  Sex: Male

DRUGS (1)
  1. BEBTELOVIMAB [Suspect]
     Active Substance: BEBTELOVIMAB
     Indication: COVID-19
     Route: 042
     Dates: start: 20220414, end: 20220414

REACTIONS (5)
  - Infusion related reaction [None]
  - Erythema [None]
  - Chest pain [None]
  - Hypoaesthesia [None]
  - Syncope [None]

NARRATIVE: CASE EVENT DATE: 20220414
